FAERS Safety Report 17842587 (Version 1)
Quarter: 2020Q2

REPORT INFORMATION
  Report Type: Spontaneous
  Country: US (occurrence: US)
  Receive Date: 20200529
  Receipt Date: 20200529
  Transmission Date: 20200714
  Serious: Yes (Hospitalization)
  Sender: FDA-Public Use
  Company Number: US-AUROBINDO-AUR-APL-2020-025918

PATIENT
  Age: 58 Day
  Sex: Male

DRUGS (1)
  1. SILDENAFIL. [Suspect]
     Active Substance: SILDENAFIL
     Indication: PULMONARY HYPERTENSION
     Dosage: 1 MILLIGRAM/KILOGRAM
     Route: 065

REACTIONS (6)
  - Skin lesion [Unknown]
  - Fat tissue increased [Unknown]
  - Skin mass [Unknown]
  - Haemangioma [Unknown]
  - Neck mass [Unknown]
  - Axillary mass [Unknown]
